FAERS Safety Report 4356392-5 (Version None)
Quarter: 2004Q2

REPORT INFORMATION
  Report Type: 
  Country: None (occurrence: None)
  Receive Date: 20040511
  Receipt Date: 20040511
  Transmission Date: 20050107
  Serious: No
  Sender: FDA-Public Use
  Company Number: None

PATIENT
  Sex: Male

DRUGS (1)
  1. DIPRIVAN [Suspect]
     Dosage: IV
     Route: 042
     Dates: start: 20040507, end: 20040510

REACTIONS (1)
  - PHARMACEUTICAL PRODUCT COMPLAINT [None]
